FAERS Safety Report 6787909-9 (Version None)
Quarter: 2010Q2

REPORT INFORMATION
  Report Type: 
  Country: None (occurrence: None)
  Receive Date: 20100623
  Receipt Date: 20071029
  Transmission Date: 20101027
  Serious: No
  Sender: FDA-Public Use
  Company Number: US-PFIZER INC-2007077093

PATIENT
  Sex: Female
  Weight: 63 kg

DRUGS (5)
  1. DEPO-MEDROL [Suspect]
     Indication: STOMATITIS
     Dates: start: 20070911, end: 20070911
  2. DEPO-MEDROL [Suspect]
     Indication: VAGINITIS BACTERIAL
  3. LEVAQUIN [Concomitant]
  4. VALTREX [Concomitant]
  5. PREDNISONE [Concomitant]

REACTIONS (1)
  - METRORRHAGIA [None]
